FAERS Safety Report 8196495-0 (Version None)
Quarter: 2012Q1

REPORT INFORMATION
  Report Type: 
  Country: None (occurrence: None)
  Receive Date: 20120309
  Receipt Date: 20120301
  Transmission Date: 20120608
  Serious: Yes (Death, Life-Threatening, Other)
  Sender: FDA-Public Use
  Company Number: FR-ELI_LILLY_AND_COMPANY-FR201112006387

PATIENT
  Age: 54 Year
  Sex: Female
  Weight: 62 kg

DRUGS (4)
  1. HEPARIN [Concomitant]
     Dosage: 5000 DF, UNKNOWN
     Route: 042
     Dates: start: 20111130
  2. EFFIENT [Suspect]
     Indication: STENT PLACEMENT
     Dosage: 60 MG, SINGLE
     Route: 042
     Dates: start: 20111130, end: 20111130
  3. ASPIRIN [Concomitant]
     Dosage: 250 MG, UNKNOWN
     Route: 042
     Dates: start: 20111130
  4. ARIXTRA [Concomitant]
     Dosage: 2.5 MG, UNKNOWN
     Route: 058
     Dates: start: 20111130

REACTIONS (7)
  - SHOCK HAEMORRHAGIC [None]
  - RETROPERITONEAL HAEMATOMA [None]
  - ANAEMIA [None]
  - METABOLIC ACIDOSIS [None]
  - PUNCTURE SITE HAEMORRHAGE [None]
  - DISSEMINATED INTRAVASCULAR COAGULATION [None]
  - THROMBOCYTOPENIA [None]
